FAERS Safety Report 5679989-9 (Version None)
Quarter: 2008Q1

REPORT INFORMATION
  Report Type: 
  Country: None (occurrence: None)
  Receive Date: 20080325
  Receipt Date: 20080325
  Transmission Date: 20080703
  Serious: Yes (Hospitalization)
  Sender: FDA-Public Use
  Company Number: None

PATIENT
  Age: 56 Year
  Sex: Male
  Weight: 95.2554 kg

DRUGS (3)
  1. NATURE'S BOUNTY COLON CLEANSER CAPS [Suspect]
     Indication: SUPPLEMENTATION THERAPY
     Dosage: ONE CAPSULE ONCE, ORAL
     Route: 048
     Dates: start: 20080224, end: 20080224
  2. LOTREL [Suspect]
     Dosage: ONCE DAILY, ORAL
     Route: 048
     Dates: start: 20020101, end: 20080220
  3. LOTREL [Suspect]
     Dosage: ONCE DAILY, ORAL
     Route: 048
     Dates: start: 20080225, end: 20080227

REACTIONS (2)
  - ANGIOEDEMA [None]
  - DRUG INTERACTION [None]
